FAERS Safety Report 7473581-1 (Version None)
Quarter: 2011Q2

REPORT INFORMATION
  Report Type: 
  Country: None (occurrence: None)
  Receive Date: 20110511
  Receipt Date: 20110505
  Transmission Date: 20111010
  Serious: Yes (Hospitalization, Disabling)
  Sender: FDA-Public Use
  Company Number: US-MERCK-1008USA02800

PATIENT
  Age: 54 Year
  Sex: Female
  Weight: 68 kg

DRUGS (7)
  1. FOSAMAX [Suspect]
     Indication: OSTEOPOROSIS
     Route: 048
     Dates: start: 20000501, end: 20010201
  2. ACTONEL [Suspect]
     Route: 065
  3. FOSAMAX [Suspect]
     Route: 048
     Dates: start: 20010201, end: 20080822
  4. VITAMINS (UNSPECIFIED) [Concomitant]
     Route: 065
  5. FOSAMAX PLUS D [Suspect]
     Route: 048
  6. CALCIUM (UNSPECIFIED) [Concomitant]
     Route: 065
  7. PRILOSEC [Concomitant]
     Indication: GASTROOESOPHAGEAL REFLUX DISEASE
     Route: 065
     Dates: start: 20000101

REACTIONS (33)
  - HYPOTENSION [None]
  - SPINAL DISORDER [None]
  - INTERVERTEBRAL DISC PROTRUSION [None]
  - VAGINAL DISORDER [None]
  - ANXIETY [None]
  - DEPRESSION [None]
  - FUNGAL INFECTION [None]
  - DRUG INEFFECTIVE [None]
  - PATELLOFEMORAL PAIN SYNDROME [None]
  - MUSCULOSKELETAL DISCOMFORT [None]
  - PAIN IN EXTREMITY [None]
  - VITAMIN D DEFICIENCY [None]
  - CONSTIPATION [None]
  - OSTEOPOROSIS [None]
  - GAIT DEVIATION [None]
  - DYSTHYMIC DISORDER [None]
  - ADVERSE DRUG REACTION [None]
  - COLITIS [None]
  - MAMMOPLASTY [None]
  - TOOTH DISORDER [None]
  - ARTHRITIS [None]
  - FALL [None]
  - DRUG HYPERSENSITIVITY [None]
  - OSTEOPENIA [None]
  - HERPES ZOSTER [None]
  - CHOLELITHIASIS [None]
  - ALOPECIA [None]
  - LUMBAR SPINAL STENOSIS [None]
  - HYPERSENSITIVITY [None]
  - FEMUR FRACTURE [None]
  - STRESS FRACTURE [None]
  - LOW TURNOVER OSTEOPATHY [None]
  - SPINAL OSTEOARTHRITIS [None]
